FAERS Safety Report 26042712 (Version 1)
Quarter: 2025Q4

REPORT INFORMATION
  Report Type: Spontaneous
  Country: US (occurrence: None)
  Receive Date: 20251113
  Receipt Date: 20251113
  Transmission Date: 20260117
  Serious: Yes (Other)
  Sender: FDA-CTU
  Company Number: None

PATIENT
  Age: 32 Year
  Sex: Male
  Weight: 49.6 kg

DRUGS (1)
  1. RINVOQ [Suspect]
     Active Substance: UPADACITINIB

REACTIONS (1)
  - Acne [None]

NARRATIVE: CASE EVENT DATE: 20251101
